FAERS Safety Report 8214599-0 (Version None)
Quarter: 2012Q1

REPORT INFORMATION
  Report Type: 
  Country: None (occurrence: None)
  Receive Date: 20120316
  Receipt Date: 20120309
  Transmission Date: 20120608
  Serious: Yes (Hospitalization)
  Sender: FDA-Public Use
  Company Number: US-AMGEN-USASP2012015602

PATIENT
  Age: 37 Year
  Sex: Male

DRUGS (11)
  1. EPOGEN [Suspect]
     Dosage: 20000 IU, QWK
     Route: 058
     Dates: start: 20120215, end: 20120226
  2. EPOGEN [Suspect]
     Indication: RENAL FAILURE CHRONIC
     Dosage: 14000 IU, QWK
     Route: 058
     Dates: start: 20120206, end: 20120214
  3. EPOGEN [Suspect]
     Indication: ANAEMIA
     Dosage: 10000 IU, QWK
     Route: 058
     Dates: start: 20110926
  4. CARVEDILOL [Concomitant]
  5. LOSARTAN POTASSIUM [Concomitant]
  6. SENSIPAR [Suspect]
     Dosage: 30 MG, QD
  7. POTASSIUM [Concomitant]
  8. CALCITRIOL [Concomitant]
  9. RENVELA [Concomitant]
  10. VENOFER [Concomitant]
  11. LASIX [Concomitant]

REACTIONS (1)
  - HAEMOGLOBIN DECREASED [None]
